FAERS Safety Report 7619600-0 (Version None)
Quarter: 2011Q3

REPORT INFORMATION
  Report Type: 
  Country: None (occurrence: None)
  Receive Date: 20110719
  Receipt Date: 20090529
  Transmission Date: 20111222
  Serious: Yes (Death, Other)
  Sender: FDA-Public Use
  Company Number: US-BAYER-200921997NA

PATIENT
  Age: 78 Year
  Sex: Male
  Weight: 95 kg

DRUGS (10)
  1. TRASYLOL [Suspect]
  2. LIDOCAINE [Concomitant]
     Dosage: 100 MG, UNK
     Route: 042
     Dates: start: 20000623, end: 20000623
  3. TRASYLOL [Suspect]
     Indication: CORONARY ARTERY BYPASS
  4. ACETYLSALICYLIC ACID SRT [Concomitant]
     Indication: CARDIAC DISORDER
     Dosage: UNK
     Dates: end: 20000601
  5. TRASYLOL [Suspect]
     Indication: MITRAL VALVE REPAIR
     Dosage: 1 ML, 200ML, FOLLOWED BY 50ML/HR
     Route: 042
     Dates: start: 20000623, end: 20000623
  6. LUPRON [Concomitant]
     Indication: THERAPEUTIC PROCEDURE
     Dosage: 30 MG, UNK
     Route: 030
     Dates: start: 19920101, end: 20000601
  7. VANCOMYCIN [Concomitant]
     Dosage: 1 G, UNK
     Route: 042
     Dates: start: 20000623, end: 20000623
  8. MANITOL [Concomitant]
     Dosage: 12.5 G, UNK
     Route: 042
     Dates: start: 20000623, end: 20000623
  9. HEPARIN [Concomitant]
     Dosage: 35000 U, UNK
     Route: 042
     Dates: start: 20000623, end: 20000623
  10. FRESH FROZEN PLASMA [Concomitant]
     Dosage: UNK
     Dates: start: 20000623

REACTIONS (9)
  - INJURY [None]
  - PAIN [None]
  - ANHEDONIA [None]
  - DEATH [None]
  - RENAL FAILURE [None]
  - FEAR [None]
  - ANXIETY [None]
  - UNEVALUABLE EVENT [None]
  - DEPRESSION [None]
